FAERS Safety Report 7299894-4 (Version None)
Quarter: 2011Q1

REPORT INFORMATION
  Report Type: 
  Country: None (occurrence: None)
  Receive Date: 20110217
  Receipt Date: 20110208
  Transmission Date: 20110831
  Serious: Yes (Hospitalization)
  Sender: FDA-Public Use
  Company Number: US-ASTRAZENECA-2010SE41534

PATIENT
  Sex: Male

DRUGS (1)
  1. SYMBICORT [Suspect]
     Dosage: 80/4.5 MCG, DAILY
     Route: 055
     Dates: start: 20100601

REACTIONS (3)
  - DYSPNOEA [None]
  - HIP FRACTURE [None]
  - DRUG INEFFECTIVE [None]
